FAERS Safety Report 6931716-0 (Version None)
Quarter: 2010Q3

REPORT INFORMATION
  Report Type: 
  Country: None (occurrence: None)
  Receive Date: 20100812
  Receipt Date: 20100727
  Transmission Date: 20110219
  Serious: No
  Sender: FDA-Public Use
  Company Number: 2010-00535

PATIENT
  Age: 25 Year
  Sex: Male
  Weight: 99.7913 kg

DRUGS (1)
  1. ZICAM EXTREME CONGESTION RELIEF [Suspect]
     Dosage: 5 DOSES X 2 1/2 DAYS
     Dates: start: 20100601, end: 20100601

REACTIONS (1)
  - ANOSMIA [None]
